FAERS Safety Report 7071811-1 (Version None)
Quarter: 2010Q4

REPORT INFORMATION
  Report Type: 
  Country: None (occurrence: None)
  Receive Date: 20101029
  Receipt Date: 20101019
  Transmission Date: 20110411
  Serious: Yes (Hospitalization)
  Sender: FDA-Public Use
  Company Number: FR-CELGENEUS-056-21880-10102038

PATIENT
  Sex: Female
  Weight: 53.7 kg

DRUGS (13)
  1. REVLIMID [Suspect]
     Indication: MULTIPLE MYELOMA
     Route: 048
     Dates: start: 20090611, end: 20090729
  2. REVLIMID [Suspect]
     Route: 048
     Dates: start: 20090817, end: 20090831
  3. REVLIMID [Suspect]
     Route: 048
     Dates: start: 20090915, end: 20091101
  4. REVLIMID [Suspect]
     Route: 048
     Dates: start: 20091113, end: 20100329
  5. REVLIMID [Suspect]
     Route: 048
     Dates: start: 20100413, end: 20100719
  6. REVLIMID [Suspect]
     Route: 048
     Dates: start: 20100802, end: 20100807
  7. DEXAMETHASONE [Suspect]
     Indication: MULTIPLE MYELOMA
     Route: 051
     Dates: start: 20090611, end: 20091112
  8. DEXAMETHASONE [Suspect]
     Route: 051
     Dates: start: 20091113, end: 20100210
  9. DEXAMETHASONE [Suspect]
     Route: 048
     Dates: start: 20100217, end: 20100714
  10. VELCADE [Suspect]
     Indication: MULTIPLE MYELOMA
     Route: 051
     Dates: start: 20100216, end: 20100713
  11. DARBEPOETIN ALFA [Concomitant]
     Indication: ANAEMIA
     Route: 058
     Dates: start: 20100101, end: 20100807
  12. ZOLEDRONIC ACID [Concomitant]
     Route: 051
     Dates: start: 20100413, end: 20100802
  13. KARDEGIC [Concomitant]
     Indication: THROMBOSIS PROPHYLAXIS
     Route: 065
     Dates: start: 20090715

REACTIONS (4)
  - COLITIS ISCHAEMIC [None]
  - FLANK PAIN [None]
  - INFLAMMATION [None]
  - RECTAL HAEMORRHAGE [None]
